FAERS Safety Report 12744864 (Version 4)
Quarter: 2017Q3

REPORT INFORMATION
  Report Type: Spontaneous
  Country: CO (occurrence: CO)
  Receive Date: 20160915
  Receipt Date: 20170926
  Transmission Date: 20171127
  Serious: Yes (Other)
  Sender: FDA-Public Use
  Company Number: CO-AMGEN-COLSP2016123858

PATIENT
  Age: 57 Year
  Sex: Female

DRUGS (1)
  1. ENBREL [Suspect]
     Active Substance: ETANERCEPT
     Indication: RHEUMATOID ARTHRITIS
     Dosage: 50 MG, WEEKLY
     Route: 058
     Dates: start: 2015, end: 201608

REACTIONS (6)
  - Platelet count decreased [Not Recovered/Not Resolved]
  - Gastritis haemorrhagic [Not Recovered/Not Resolved]
  - Haematemesis [Recovered/Resolved]
  - Chronic gastritis [Recovered/Resolved]
  - Gastric ulcer [Not Recovered/Not Resolved]
  - Malaise [Unknown]

NARRATIVE: CASE EVENT DATE: 201604
